FAERS Safety Report 9370758 (Version 1)
Quarter: 2013Q2

REPORT INFORMATION
  Report Type: Report from Study
  Country: US (occurrence: US)
  Receive Date: 20130626
  Receipt Date: 20130626
  Transmission Date: 20140414
  Serious: Yes (Hospitalization, Other)
  Sender: FDA-Public Use
  Company Number: US-ABBOTT-13P-163-1108590-00

PATIENT
  Age: 36 Year
  Sex: 0

DRUGS (2)
  1. LUPRON DEPOT [Suspect]
     Indication: UTERINE LEIOMYOMA
     Dates: start: 201203, end: 201303
  2. CALCIUM 630MG/VITAMIND 400 UNITS [Concomitant]
     Indication: PRODUCT USED FOR UNKNOWN INDICATION

REACTIONS (3)
  - Anaemia postoperative [Recovering/Resolving]
  - Uterine leiomyoma [Recovering/Resolving]
  - Hot flush [Recovering/Resolving]
